FAERS Safety Report 9292468 (Version 3)
Quarter: 2013Q3

REPORT INFORMATION
  Report Type: Spontaneous
  Country: ID (occurrence: ID)
  Receive Date: 20130516
  Receipt Date: 20130710
  Transmission Date: 20140515
  Serious: No
  Sender: FDA-Public Use
  Company Number: ID-PFIZER INC-2013145590

PATIENT
  Sex: Female

DRUGS (1)
  1. CYTOTEC [Suspect]
     Indication: ABORTION
     Dosage: 10 DF, UNK
     Route: 048

REACTIONS (3)
  - Off label use [Recovered/Resolved]
  - Product counterfeit [Recovered/Resolved]
  - Gastric disorder [Recovered/Resolved]
